FAERS Safety Report 9459605 (Version 1)
Quarter: 2013Q3

REPORT INFORMATION
  Report Type: Spontaneous
  Country: US (occurrence: US)
  Receive Date: 20130815
  Receipt Date: 20130815
  Transmission Date: 20140515
  Serious: No
  Sender: FDA-Public Use
  Company Number: US-COVIDIEN/TYCO HEALTHCARE/MALLINCKRODT-T201303862

PATIENT
  Age: 44 Year
  Sex: Female
  Weight: 64.85 kg

DRUGS (9)
  1. FENTANYL TRANSDERMAL SYSTEM [Suspect]
     Indication: BACK PAIN
     Dosage: 50 MCG/HR, Q 72 HOURS
     Route: 062
     Dates: start: 20130726
  2. FENTANYL [Concomitant]
     Indication: PAIN
     Dosage: 25 MCG/HR, Q 72 HOURS
     Route: 062
     Dates: start: 20130712, end: 20130726
  3. NORCO [Concomitant]
     Indication: PAIN
     Dosage: 10/325 MG, Q 4 HOURS
     Route: 048
  4. BACLOFEN [Concomitant]
     Dosage: 20 MG, QID
  5. NAPROSYN                           /00256201/ [Concomitant]
     Dosage: 500 MG, BID
     Route: 048
  6. DEXILANT [Concomitant]
     Dosage: 60 MG, QD
  7. LEXAPRO [Concomitant]
     Dosage: 20 MG, QD
  8. GLUCOSAMINE + CHONDROITIN          /01625901/ [Concomitant]
     Dosage: UNK
  9. OXYGEN [Concomitant]
     Indication: CHRONIC OBSTRUCTIVE PULMONARY DISEASE
     Dosage: SLEEPS WITH OXYGEN

REACTIONS (2)
  - Pain in extremity [Not Recovered/Not Resolved]
  - Musculoskeletal disorder [Not Recovered/Not Resolved]
